FAERS Safety Report 14469621 (Version 1)
Quarter: 2018Q1

REPORT INFORMATION
  Report Type: Spontaneous
  Country: FR (occurrence: FR)
  Receive Date: 20180131
  Receipt Date: 20180131
  Transmission Date: 20180509
  Serious: Yes (Life-Threatening)
  Sender: FDA-Public Use
  Company Number: FR-CONCORDIA PHARMACEUTICALS INC.-E2B_00009635

PATIENT
  Age: 80 Year
  Sex: Female

DRUGS (2)
  1. CORGARD [Suspect]
     Active Substance: NADOLOL
     Indication: ARRHYTHMIA
     Route: 048
     Dates: end: 20170804
  2. DIGOXIN. [Suspect]
     Active Substance: DIGOXIN
     Indication: ATRIAL FIBRILLATION
     Route: 048
     Dates: end: 20170804

REACTIONS (2)
  - Cardioactive drug level increased [Recovered/Resolved]
  - Cardiac failure [Recovered/Resolved]

NARRATIVE: CASE EVENT DATE: 20170804
